FAERS Safety Report 8815602 (Version 2)
Quarter: 2012Q4

REPORT INFORMATION
  Report Type: 
  Country: FR (occurrence: FR)
  Receive Date: 20120928
  Receipt Date: 20121005
  Transmission Date: 20130627
  Serious: Yes (Other)
  Sender: FDA-Public Use
  Company Number: FR-ASTRAZENECA-2012SE73522

PATIENT
  Sex: Male

DRUGS (4)
  1. XEROQUEL [Suspect]
     Indication: MAJOR DEPRESSION
     Route: 048
  2. LOXAPAC [Concomitant]
  3. TRANXENE [Concomitant]
  4. SEROPLEX [Concomitant]

REACTIONS (1)
  - Hepatitis B [Not Recovered/Not Resolved]
